FAERS Safety Report 6222951-8 (Version None)
Quarter: 2009Q2

REPORT INFORMATION
  Report Type: 
  Country: None (occurrence: None)
  Receive Date: 20090611
  Receipt Date: 20090608
  Transmission Date: 20091009
  Serious: Yes (Other)
  Sender: FDA-Public Use
  Company Number: DE-BRISTOL-MYERS SQUIBB COMPANY-14555353

PATIENT
  Age: 62 Year
  Sex: Female
  Weight: 71 kg

DRUGS (1)
  1. KARVEZIDE TABS 150MG/12.5MG [Suspect]
     Indication: HYPERTENSION
     Dosage: 1 DF- 150/12.5MG TABLET. ONE TABLET DAILY
     Route: 048
     Dates: start: 20041201, end: 20090401

REACTIONS (4)
  - HAEMATURIA [None]
  - OEDEMA MOUTH [None]
  - OROPHARYNGEAL PAIN [None]
  - SWOLLEN TONGUE [None]
